FAERS Safety Report 19886207 (Version 1)
Quarter: 2021Q3

REPORT INFORMATION
  Report Type: Spontaneous
  Country: RU (occurrence: RU)
  Receive Date: 20210927
  Receipt Date: 20210927
  Transmission Date: 20211014
  Serious: Yes (Other)
  Sender: FDA-Public Use
  Company Number: RU-GLAXOSMITHKLINE-RU2021EME197698

PATIENT
  Sex: Female

DRUGS (1)
  1. KIVEXA [Suspect]
     Active Substance: ABACAVIR SULFATE\LAMIVUDINE
     Indication: ANTIRETROVIRAL THERAPY
     Dosage: UNK
     Dates: start: 202106, end: 202108

REACTIONS (3)
  - Dyspnoea [Unknown]
  - Choking [Unknown]
  - Headache [Unknown]

NARRATIVE: CASE EVENT DATE: 2021
